FAERS Safety Report 8071959-9 (Version None)
Quarter: 2012Q1

REPORT INFORMATION
  Report Type: 
  Country: None (occurrence: None)
  Receive Date: 20120126
  Receipt Date: 20120119
  Transmission Date: 20120608
  Serious: Yes (Death, Other)
  Sender: FDA-Public Use
  Company Number: US-BAYER-2011-036266

PATIENT
  Age: 15 Year
  Sex: Female
  Weight: 88.435 kg

DRUGS (13)
  1. YASMIN [Suspect]
     Indication: ACNE
  2. OMNICEF [Concomitant]
     Dosage: 300 MG, BID
     Dates: start: 20090520
  3. TYLENOL-500 [Concomitant]
     Dosage: UNK
     Route: 048
     Dates: start: 20090403
  4. VICODIN [Concomitant]
     Indication: PAIN
     Dosage: UNK
     Dates: start: 20090401
  5. TOPICORT [Concomitant]
     Indication: HYPERSENSITIVITY
     Dosage: 15 G, UNK
     Route: 061
     Dates: start: 20090603
  6. YASMIN [Suspect]
     Indication: DYSMENORRHOEA
     Dosage: UNK
     Route: 048
  7. NORCO [Concomitant]
     Indication: PAIN
     Dosage: UNK
     Dates: start: 20090401
  8. ZYRTEC [Concomitant]
     Dosage: UNK UNK, BID
     Dates: start: 20090520
  9. PREDNISONE TAB [Concomitant]
     Indication: RASH
  10. IBUPROFEN [Concomitant]
     Dosage: UNK
     Route: 048
     Dates: start: 20090403, end: 20090410
  11. YAZ [Suspect]
     Indication: ACNE
     Dosage: UNK UNK, QD
     Route: 048
  12. DROSPIRENONE AND ETHINYL ESTRADIOL [Suspect]
     Indication: ACNE
     Dosage: UNK
     Route: 048
     Dates: start: 20080801, end: 20090613
  13. SKELAXIN [Concomitant]
     Dosage: 800 MG, TID
     Dates: start: 20090410

REACTIONS (9)
  - VOMITING [None]
  - HEART RATE DECREASED [None]
  - PULMONARY EMBOLISM [None]
  - CARDIO-RESPIRATORY ARREST [None]
  - MYDRIASIS [None]
  - HYPERVENTILATION [None]
  - POSTURE ABNORMAL [None]
  - CONVULSION [None]
  - DYSPNOEA [None]
